FAERS Safety Report 16036461 (Version 1)
Quarter: 2019Q1

REPORT INFORMATION
  Report Type: Spontaneous
  Country: US (occurrence: US)
  Receive Date: 20190305
  Receipt Date: 20190305
  Transmission Date: 20190418
  Serious: No
  Sender: FDA-Public Use
  Company Number: US-ALLERGAN-1850909US

PATIENT
  Sex: Female

DRUGS (3)
  1. ESTRACE [Suspect]
     Active Substance: ESTRADIOL
     Indication: VULVOVAGINAL DRYNESS
     Dosage: UNK UNK, Q WEEK
     Route: 067
  2. ESTRACE [Suspect]
     Active Substance: ESTRADIOL
     Dosage: 1 AND 1/2 G EVERY 4 DAYS INSTEAD OF  1 G UP TO THREE TIMES A WEEK
     Route: 067
  3. ESTRACE [Suspect]
     Active Substance: ESTRADIOL
     Dosage: 2 G, QD
     Route: 067
     Dates: start: 20181005

REACTIONS (3)
  - Product dose omission [Unknown]
  - Incorrect dose administered [Unknown]
  - Product packaging quantity issue [Unknown]
